FAERS Safety Report 11975498 (Version 1)
Quarter: 2016Q1

REPORT INFORMATION
  Report Type: Report from Study
  Country: NL (occurrence: NL)
  Receive Date: 20160129
  Receipt Date: 20160129
  Transmission Date: 20160526
  Serious: Yes (Death)
  Sender: FDA-Public Use
  Company Number: NL-ABBVIE-16P-114-1546639-00

PATIENT
  Age: 80 Year
  Sex: Male

DRUGS (1)
  1. DUODOPA [Suspect]
     Active Substance: CARBIDOPA\LEVODOPA
     Indication: PARKINSON^S DISEASE
     Dosage: 20/5MG/ML MD: 10.5 CD: 4.7 ED: 0.1 ND
     Route: 050
     Dates: start: 20120206, end: 20160122

REACTIONS (1)
  - Death [Fatal]

NARRATIVE: CASE EVENT DATE: 20160122
